FAERS Safety Report 5140614-7 (Version None)
Quarter: 2006Q4

REPORT INFORMATION
  Report Type: 
  Country: None (occurrence: None)
  Receive Date: 20061025
  Receipt Date: 20061012
  Transmission Date: 20070319
  Serious: Yes (Other)
  Sender: FDA-Public Use
  Company Number: MEDI-0005032

PATIENT

DRUGS (1)
  1. SYNAGIS [Suspect]
     Indication: ANTIVIRAL PROPHYLAXIS
     Dosage: INTRAMUSCULAR
     Route: 030

REACTIONS (4)
  - ABDOMINAL DISTENSION [None]
  - MALAISE [None]
  - RASH [None]
  - UNEVALUABLE EVENT [None]
